FAERS Safety Report 22645745 (Version 1)
Quarter: 2023Q2

REPORT INFORMATION
  Report Type: Spontaneous
  Country: US (occurrence: None)
  Receive Date: 20230626
  Receipt Date: 20230626
  Transmission Date: 20230721
  Serious: Yes (Disabling)
  Sender: FDA-Public Use
  Company Number: None

PATIENT
  Age: 71 Year
  Sex: Female
  Weight: 81 kg

DRUGS (9)
  1. DEFINITY [Suspect]
     Active Substance: PERFLUTREN
     Indication: Stress echocardiogram
     Dates: start: 20230526, end: 20230526
  2. ZOLOFT [Concomitant]
     Active Substance: SERTRALINE HYDROCHLORIDE
  3. REMERON [Concomitant]
     Active Substance: MIRTAZAPINE
  4. RISPERDAL [Concomitant]
     Active Substance: RISPERIDONE
  5. CYTOMEL [Concomitant]
     Active Substance: LIOTHYRONINE SODIUM
  6. LEVOTHYROXINE [Concomitant]
     Active Substance: LEVOTHYROXINE
  7. VITAMIN D [Concomitant]
     Active Substance: VITAMIN D NOS
  8. CLARITIN [Concomitant]
     Active Substance: LORATADINE
  9. TYLENOL [Concomitant]
     Active Substance: ACETAMINOPHEN

REACTIONS (6)
  - Product communication issue [None]
  - Heart rate increased [None]
  - Rash [None]
  - Back pain [None]
  - Nausea [None]
  - Dyspnoea [None]

NARRATIVE: CASE EVENT DATE: 20230526
